FAERS Safety Report 14794695 (Version 2)
Quarter: 2018Q2

REPORT INFORMATION
  Report Type: Report from Study
  Country: US (occurrence: US)
  Receive Date: 20180423
  Receipt Date: 20180502
  Transmission Date: 20180711
  Serious: Yes (Other)
  Sender: FDA-Public Use
  Company Number: US-TAKEDA-2018TUS010527

PATIENT
  Age: 56 Year
  Sex: Male
  Weight: 113.4 kg

DRUGS (13)
  1. BRIGATINIB [Suspect]
     Active Substance: BRIGATINIB
     Indication: NON-SMALL CELL LUNG CANCER
     Dosage: 180 MG, BID
     Route: 048
     Dates: start: 20171205, end: 20180416
  2. CALCIUM CARBONATE W/MAGNESIUM HYDROXIDE [Concomitant]
     Indication: GASTROOESOPHAGEAL REFLUX DISEASE
     Dosage: UNK UNK, QD
     Route: 048
     Dates: start: 201703, end: 20180103
  3. SODIUM CHLORIDE. [Concomitant]
     Active Substance: SODIUM CHLORIDE
     Indication: RENAL IMPAIRMENT
     Dosage: UNK
     Route: 042
  4. VITAMIN C [Concomitant]
     Active Substance: ASCORBIC ACID
     Indication: SUPPLEMENTATION THERAPY
     Dosage: UNK UNK, QD
     Route: 048
     Dates: start: 20170411, end: 20180103
  5. DEXAMETHASONE. [Concomitant]
     Active Substance: DEXAMETHASONE
     Indication: HEADACHE
     Dosage: 2 MG, QD
     Route: 048
     Dates: start: 20180330, end: 20180403
  6. IMODIUM A-D [Concomitant]
     Active Substance: LOPERAMIDE HYDROCHLORIDE
     Indication: DIARRHOEA
     Dosage: 2 MG, QD
     Route: 048
     Dates: start: 20180103
  7. LASIX [Concomitant]
     Active Substance: FUROSEMIDE
     Indication: OEDEMA PERIPHERAL
     Dosage: 20 MG, QD
     Route: 048
     Dates: start: 20170609
  8. FRAGMIN [Concomitant]
     Active Substance: DALTEPARIN SODIUM
     Indication: CEREBROVASCULAR ACCIDENT
     Dosage: 0.72 ML, UNK
     Route: 058
     Dates: start: 20170725, end: 20180327
  9. ALBUTEROL HFA [Concomitant]
     Active Substance: ALBUTEROL SULFATE
     Dosage: 90 UG, UNK
     Route: 055
     Dates: start: 20171205
  10. DUONEB [Concomitant]
     Active Substance: ALBUTEROL SULFATE\IPRATROPIUM BROMIDE
     Indication: WHEEZING
     Dosage: 3 ML, Q6HR
     Route: 055
     Dates: start: 20180227
  11. BUDESONIDE. [Concomitant]
     Active Substance: BUDESONIDE
     Indication: ASTHMA
     Dosage: 90 UG, BID
     Route: 055
     Dates: start: 20180130, end: 20180227
  12. TUSSIONEX                          /00004701/ [Concomitant]
     Active Substance: BROMHEXINE
     Indication: COUGH
     Dosage: 5 ML, BID
     Route: 048
     Dates: start: 20180327, end: 20180408
  13. FRAGMIN [Concomitant]
     Active Substance: DALTEPARIN SODIUM
     Indication: DEEP VEIN THROMBOSIS

REACTIONS (1)
  - Blood creatine phosphokinase increased [Not Recovered/Not Resolved]
